FAERS Safety Report 13226782 (Version 5)
Quarter: 2017Q2

REPORT INFORMATION
  Report Type: Report from Study
  Country: US (occurrence: US)
  Receive Date: 20170213
  Receipt Date: 20170426
  Transmission Date: 20170830
  Serious: Yes (Other)
  Sender: FDA-Public Use
  Company Number: US-009507513-1702USA000976

PATIENT
  Age: 72 Year
  Sex: Female

DRUGS (8)
  1. ASPIRIN. [Concomitant]
     Active Substance: ASPIRIN
  2. PEMBROLIZUMAB. [Suspect]
     Active Substance: PEMBROLIZUMAB
     Dosage: UNK UNK, Q3W
     Route: 042
     Dates: start: 20160217
  3. PEMBROLIZUMAB. [Suspect]
     Active Substance: PEMBROLIZUMAB
     Dosage: UNK UNK, Q3W
     Route: 042
     Dates: start: 20170308
  4. PEMBROLIZUMAB. [Suspect]
     Active Substance: PEMBROLIZUMAB
     Dosage: UNK UNK, Q3W
     Route: 042
     Dates: start: 20170329
  5. FAMOTIDINE. [Concomitant]
     Active Substance: FAMOTIDINE
  6. PEMBROLIZUMAB. [Suspect]
     Active Substance: PEMBROLIZUMAB
     Indication: METASTATIC MALIGNANT MELANOMA
     Dosage: UNK UNK, Q3W
     Dates: start: 201602
  7. RANITIDINE. [Concomitant]
     Active Substance: RANITIDINE
  8. PEMBROLIZUMAB. [Suspect]
     Active Substance: PEMBROLIZUMAB
     Dosage: UNK UNK, Q3W
     Route: 042
     Dates: start: 20170419

REACTIONS (22)
  - Hair growth abnormal [Unknown]
  - Paraesthesia oral [Unknown]
  - Infusion site discolouration [Not Recovered/Not Resolved]
  - Anxiety [Unknown]
  - Pain [Recovered/Resolved]
  - Fatigue [Recovered/Resolved]
  - Skin discolouration [Unknown]
  - Tic [Unknown]
  - Rash vesicular [Recovered/Resolved]
  - Product use issue [Unknown]
  - Haemorrhoids [Unknown]
  - Chest discomfort [Unknown]
  - Skin disorder [Unknown]
  - Poor quality sleep [Unknown]
  - Anaemia [Unknown]
  - Flatulence [Unknown]
  - Rash pruritic [Recovered/Resolved]
  - Rash papular [Not Recovered/Not Resolved]
  - Bronchiectasis [Unknown]
  - Skin depigmentation [Not Recovered/Not Resolved]
  - Peripheral swelling [Recovered/Resolved]
  - Hypothyroidism [Unknown]

NARRATIVE: CASE EVENT DATE: 201602
